FAERS Safety Report 21306801 (Version 1)
Quarter: 2022Q3

REPORT INFORMATION
  Report Type: Spontaneous
  Country: CN (occurrence: CN)
  Receive Date: 20220908
  Receipt Date: 20220908
  Transmission Date: 20221027
  Serious: Yes (Other)
  Sender: FDA-Public Use
  Company Number: None

PATIENT
  Age: 10 Year
  Sex: Male
  Weight: 27 kg

DRUGS (5)
  1. CYCLOPHOSPHAMIDE [Suspect]
     Active Substance: CYCLOPHOSPHAMIDE
     Indication: Acute lymphocytic leukaemia
     Dosage: 1G, QD, ST,  (DILUTED WITH 4:1 GLUCOSE AND SODIUM CHLORIDE SOLUTION 250ML )
     Route: 041
     Dates: start: 20220603, end: 20220603
  2. DEXTROSE MONOHYDRATE\SODIUM CHLORIDE [Suspect]
     Active Substance: DEXTROSE MONOHYDRATE\SODIUM CHLORIDE
     Indication: Medication dilution
     Dosage: 4:1 ,250ML, QD, ST, (DILUTED WITH CYCLOPHOSPHAMIDE 1G)
     Route: 041
     Dates: start: 20220603, end: 20220603
  3. SODIUM CHLORIDE [Suspect]
     Active Substance: SODIUM CHLORIDE
     Indication: Medication dilution
     Dosage: 250ML, BID, Q12H, (DILUTED WITH CYTARABINE 1G)
     Route: 041
     Dates: start: 20220603, end: 20220606
  4. MERCAPTOPURINE [Suspect]
     Active Substance: MERCAPTOPURINE
     Indication: Acute lymphocytic leukaemia
     Dosage: 50 MG ,QD
     Route: 048
     Dates: start: 20220603, end: 20220606
  5. CYTARABINE [Suspect]
     Active Substance: CYTARABINE
     Indication: Acute lymphocytic leukaemia
     Dosage: 1G, BID,Q12H, (DILUTED WITH 0.9% SODIUM CHLORIDE SOLUTION 250ML )
     Route: 041
     Dates: start: 20220603, end: 20220606

REACTIONS (1)
  - Myelosuppression [Recovering/Resolving]

NARRATIVE: CASE EVENT DATE: 20220611
